FAERS Safety Report 4728289-X (Version None)
Quarter: 2005Q3

REPORT INFORMATION
  Report Type: 
  Country: None (occurrence: None)
  Receive Date: 20050727
  Receipt Date: 20050714
  Transmission Date: 20060218
  Serious: Yes (Hospitalization)
  Sender: FDA-Public Use
  Company Number: 2005US000914

PATIENT
  Age: 50 Year
  Sex: Male

DRUGS (1)
  1. PROGRAF [Suspect]
     Indication: PROPHYLAXIS AGAINST TRANSPLANT REJECTION

REACTIONS (10)
  - GLOMERULOSCLEROSIS [None]
  - HAEMATOMA [None]
  - HAEMODIALYSIS [None]
  - INTERCAPILLARY GLOMERULOSCLEROSIS [None]
  - NEPHROPATHY [None]
  - NEPHROPATHY TOXIC [None]
  - POST PROCEDURAL COMPLICATION [None]
  - RENAL ARTERY OCCLUSION [None]
  - RENAL DISORDER [None]
  - RENAL ISCHAEMIA [None]
